FAERS Safety Report 8256002-0 (Version None)
Quarter: 2012Q1

REPORT INFORMATION
  Report Type: 
  Country: None (occurrence: None)
  Receive Date: 20120330
  Receipt Date: 20120324
  Transmission Date: 20120608
  Serious: Yes (Other)
  Sender: FDA-Public Use
  Company Number: VAL_00723_2012

PATIENT
  Sex: Female

DRUGS (2)
  1. ROCALTROL [Suspect]
     Indication: OSTEOPOROSIS
     Dosage: (0.25 UG QD ORAL), (0.25 UG BID ORAL)
     Route: 048
     Dates: start: 20110101, end: 20110101
  2. ROCALTROL [Suspect]
     Indication: OSTEOPOROSIS
     Dosage: (0.25 UG QD ORAL), (0.25 UG BID ORAL)
     Route: 048
     Dates: start: 20120201

REACTIONS (1)
  - BLOOD CALCIUM DECREASED [None]
